FAERS Safety Report 7220907-X (Version None)
Quarter: 2011Q1

REPORT INFORMATION
  Report Type: 
  Country: None (occurrence: None)
  Receive Date: 20110112
  Receipt Date: 20101109
  Transmission Date: 20110831
  Serious: No
  Sender: FDA-Public Use
  Company Number: A0891409A

PATIENT
  Age: 71 Year
  Sex: Male

DRUGS (5)
  1. VITAMIN E [Concomitant]
  2. VYTORIN [Concomitant]
  3. JALYN [Suspect]
     Indication: BENIGN PROSTATIC HYPERPLASIA
     Dosage: 1CAP PER DAY
     Route: 048
     Dates: start: 20101019
  4. NEXIUM [Concomitant]
  5. VITAMIN B-12 [Concomitant]

REACTIONS (3)
  - DIZZINESS [None]
  - SOMNOLENCE [None]
  - FEELING ABNORMAL [None]
